FAERS Safety Report 10037877 (Version 2)
Quarter: 2014Q2

REPORT INFORMATION
  Report Type: Report from Study
  Country: NL (occurrence: NL)
  Receive Date: 20140326
  Receipt Date: 20140528
  Transmission Date: 20141212
  Serious: Yes (Death, Hospitalization)
  Sender: FDA-Public Use
  Company Number: NL-CELGENEUS-114-21660-14031799

PATIENT
  Age: 74 Year
  Sex: Male
  Weight: 73 kg

DRUGS (7)
  1. ABRAXANE [Suspect]
     Indication: PANCREATIC CARCINOMA
     Dosage: 12.5 MILLIGRAM/SQ. METER
     Route: 041
     Dates: start: 20140226, end: 20140310
  2. GEMCITABINE [Suspect]
     Indication: PANCREATIC CARCINOMA
     Dosage: 1000 MILLIGRAM/SQ. METER
     Route: 065
     Dates: start: 20140226, end: 20140310
  3. CREON [Concomitant]
     Indication: PANCREATIC INSUFFICIENCY
     Dosage: 450 MILLIGRAM
     Route: 048
     Dates: start: 2013, end: 20140309
  4. INSULIN [Concomitant]
     Indication: DIABETES MELLITUS
     Route: 058
     Dates: start: 2013, end: 20140309
  5. PANTOPRAZOL [Concomitant]
     Indication: GASTRIC DISORDER
     Dosage: 40 MILLIGRAM
     Route: 048
     Dates: start: 2013
  6. PANTOPRAZOL [Concomitant]
     Indication: GASTROINTESTINAL HAEMORRHAGE
  7. OXYCODON [Concomitant]
     Indication: ABDOMINAL PAIN
     Dosage: 40 MILLIGRAM
     Route: 048
     Dates: start: 2013

REACTIONS (1)
  - Upper gastrointestinal haemorrhage [Fatal]
